FAERS Safety Report 12551816 (Version 1)
Quarter: 2016Q3

REPORT INFORMATION
  Report Type: Spontaneous
  Country: US (occurrence: None)
  Receive Date: 20160712
  Receipt Date: 20160712
  Transmission Date: 20161109
  Serious: Yes (Hospitalization)
  Sender: FDA-Public Use
  Company Number: None

PATIENT
  Age: 56 Year
  Sex: Male
  Weight: 97.52 kg

DRUGS (5)
  1. CALCIUM AND VITAMIN D MULTIVITAMIN [Concomitant]
  2. FOLIC ACID. [Concomitant]
     Active Substance: FOLIC ACID
  3. WARFARIN [Concomitant]
     Active Substance: WARFARIN
  4. HUMIRA [Suspect]
     Active Substance: ADALIMUMAB
     Dosage: 6 INJECTION(S) TWICE PER MONTH GIVEN INTO/UNDER THE SKIN
     Route: 058
     Dates: start: 20160527, end: 20160622
  5. URSODIOL. [Concomitant]
     Active Substance: URSODIOL

REACTIONS (3)
  - Pulmonary thrombosis [None]
  - Dysphonia [None]
  - Thrombosis [None]

NARRATIVE: CASE EVENT DATE: 20160616
